FAERS Safety Report 19675336 (Version 2)
Quarter: 2021Q3

REPORT INFORMATION
  Report Type: Report from Study
  Country: None (occurrence: GR)
  Receive Date: 20210809
  Receipt Date: 20210816
  Transmission Date: 20211014
  Serious: Yes (Death, Hospitalization)
  Sender: FDA-Public Use
  Company Number: GR-ABBVIE-21K-066-4021206-00

PATIENT
  Age: 67 Year
  Sex: Female
  Weight: 62 kg

DRUGS (6)
  1. LETROFEM [Concomitant]
     Indication: PRODUCT USED FOR UNKNOWN INDICATION
     Dosage: 1, 1 (AT NOON)
     Route: 048
  2. DUODOPA [Suspect]
     Active Substance: CARBIDOPA\LEVODOPA
     Indication: PARKINSON^S DISEASE
     Dosage: MORNING DOSE: 11.0 ML; CONTINUOUS RATE: 3.7 ML/H; EXTRA DOSE: 1.4 ML
     Route: 050
     Dates: start: 20210413
  3. DUODOPA [Suspect]
     Active Substance: CARBIDOPA\LEVODOPA
  4. ZOLOFT [Concomitant]
     Active Substance: SERTRALINE HYDROCHLORIDE
     Indication: DEPRESSION
     Dosage: 1, 1 (AT NIGHT)
     Route: 048
  5. CIRCADIN [Concomitant]
     Active Substance: MELATONIN
     Indication: PRODUCT USED FOR UNKNOWN INDICATION
     Dosage: 1, 1 (AT NIGHT)
     Route: 048
  6. VESOMNI [Concomitant]
     Active Substance: SOLIFENACIN\TAMSULOSIN
     Indication: DYSURIA
     Dosage: (6 + 0.4) MG?1, 1 (AT NIGHT)
     Route: 048

REACTIONS (5)
  - Aspiration [Not Recovered/Not Resolved]
  - Death [Fatal]
  - Asthenia [Not Recovered/Not Resolved]
  - Urinary tract infection [Not Recovered/Not Resolved]
  - Pneumonia [Not Recovered/Not Resolved]

NARRATIVE: CASE EVENT DATE: 2021
